FAERS Safety Report 9663156 (Version 1)
Quarter: 2013Q4

REPORT INFORMATION
  Report Type: Report from Study
  Country: CA (occurrence: CA)
  Receive Date: 20131101
  Receipt Date: 20131101
  Transmission Date: 20140711
  Serious: Yes (Death)
  Sender: FDA-Public Use
  Company Number: CA-ROCHE-1296673

PATIENT
  Age: 46 Year
  Sex: 0

DRUGS (8)
  1. AVASTIN [Suspect]
     Indication: COLORECTAL CANCER METASTATIC
     Route: 065
     Dates: start: 20120106, end: 20120914
  2. AVASTIN [Suspect]
     Route: 065
     Dates: start: 20121011, end: 20130520
  3. FOLINIC ACID [Suspect]
     Indication: COLORECTAL CANCER METASTATIC
     Route: 065
     Dates: start: 20120106, end: 20120914
  4. FOLINIC ACID [Suspect]
     Route: 065
     Dates: start: 20121011, end: 20130520
  5. 5-FLUOROURACIL [Suspect]
     Indication: COLORECTAL CANCER METASTATIC
     Route: 065
     Dates: start: 20120106, end: 20120914
  6. 5-FLUOROURACIL [Suspect]
     Route: 065
     Dates: start: 20121011, end: 20130520
  7. IRINOTECAN [Suspect]
     Indication: COLORECTAL CANCER METASTATIC
     Route: 065
     Dates: start: 20120106, end: 20120914
  8. OXALIPLATIN [Suspect]
     Indication: COLORECTAL CANCER METASTATIC
     Route: 065
     Dates: start: 20121011, end: 20130520

REACTIONS (2)
  - Death [Fatal]
  - Disease progression [Unknown]
